FAERS Safety Report 9831904 (Version 1)
Quarter: 2014Q1

REPORT INFORMATION
  Report Type: Spontaneous
  Country: US (occurrence: US)
  Receive Date: 20140121
  Receipt Date: 20140121
  Transmission Date: 20141002
  Serious: No
  Sender: FDA-Public Use
  Company Number: US-PFIZER INC-2014014643

PATIENT
  Age: 61 Year
  Sex: Male

DRUGS (1)
  1. INLYTA [Suspect]
     Indication: RENAL CANCER
     Dosage: 1MG TAB (4 TABLETS) TWICE DAILY
     Route: 048

REACTIONS (2)
  - Pain in extremity [Recovered/Resolved]
  - Oral pain [Recovered/Resolved]
